FAERS Safety Report 7833215-0 (Version None)
Quarter: 2011Q4

REPORT INFORMATION
  Report Type: 
  Country: None (occurrence: None)
  Receive Date: 20111024
  Receipt Date: 20111019
  Transmission Date: 20120403
  Serious: Yes (Other)
  Sender: FDA-Public Use
  Company Number: US-PFIZER INC-2011220479

PATIENT
  Sex: Female
  Weight: 63 kg

DRUGS (10)
  1. CALCIUM CARBONATE [Suspect]
     Dosage: 1200 MG, DAILY
     Route: 048
     Dates: start: 20110101, end: 20110901
  2. AMLODIPINE BESILATE [Concomitant]
     Indication: HYPERTENSION
     Dosage: 5 MG, DAILY
     Route: 048
  3. NEURONTIN [Suspect]
     Indication: NEUROPATHY PERIPHERAL
     Dosage: 300MG AT LUNCH TIME AND 600MG AT BED TIME
     Route: 048
  4. NEXIUM [Concomitant]
     Indication: BARRETT'S OESOPHAGUS
     Dosage: 40 MG, DAILY
     Route: 048
  5. VAGIFEM [Concomitant]
     Indication: HORMONE THERAPY
     Dosage: UNK, 3X/WEEK
     Route: 067
  6. ASPIRIN [Concomitant]
     Indication: HYPERTENSION
     Dosage: 81 MG, ALTERNATE DAY
     Route: 048
  7. ACETAMINOPHEN AND HYDROCODONE BITARTRATE [Concomitant]
     Indication: PAIN
     Dosage: 5/500 MG, 3X/DAY
     Route: 048
  8. BYSTOLIC [Concomitant]
     Indication: HYPERTENSION
     Dosage: 10 MG, DAILY
     Route: 048
  9. NEURONTIN [Suspect]
     Dosage: UNK
     Route: 048
  10. SIMVASTATIN [Suspect]
     Indication: BLOOD CHOLESTEROL
     Dosage: 20 MG, DAILY
     Route: 048

REACTIONS (7)
  - BENIGN SALIVARY GLAND NEOPLASM [None]
  - RENAL CYST [None]
  - BLOOD CALCIUM INCREASED [None]
  - BLOOD CHOLESTEROL INCREASED [None]
  - ANGIOEDEMA [None]
  - PAIN IN EXTREMITY [None]
  - PROTEIN URINE PRESENT [None]
